FAERS Safety Report 13344624 (Version 1)
Quarter: 2017Q1

REPORT INFORMATION
  Report Type: Report from Study
  Country: US (occurrence: US)
  Receive Date: 20170317
  Receipt Date: 20170317
  Transmission Date: 20170428
  Serious: No
  Sender: FDA-Public Use
  Company Number: US-009507513-1703USA003297

PATIENT
  Sex: Female

DRUGS (1)
  1. NEXPLANON [Suspect]
     Active Substance: ETONOGESTREL
     Dosage: IMPLANT, IS GOOD FOR THREE YEARS
     Route: 059

REACTIONS (4)
  - Scar [Unknown]
  - Contusion [Recovered/Resolved]
  - Amenorrhoea [Unknown]
  - Vaginal haemorrhage [Recovered/Resolved]
